FAERS Safety Report 4522515-8 (Version None)
Quarter: 2004Q4

REPORT INFORMATION
  Report Type: 
  Country: None (occurrence: None)
  Receive Date: 20041207
  Receipt Date: 20041119
  Transmission Date: 20050328
  Serious: Yes (Death)
  Sender: FDA-Public Use
  Company Number: GBS041115988

PATIENT
  Age: 52 Year
  Sex: Male
  Weight: 58 kg

DRUGS (4)
  1. OLANZAPINE [Suspect]
  2. ASPIRIN [Concomitant]
  3. VITAMIN B COMPLEX CAP [Concomitant]
  4. SIMVASTATIN [Concomitant]

REACTIONS (19)
  - ABNORMAL BEHAVIOUR [None]
  - ALCOHOL POISONING [None]
  - ARTHROPATHY [None]
  - ASTHENIA [None]
  - ATHEROSCLEROSIS [None]
  - BACTERIAL INFECTION [None]
  - BRONCHOPNEUMONIA [None]
  - CARDIOMEGALY [None]
  - CARDITIS [None]
  - CEREBRAL ATHEROSCLEROSIS [None]
  - CORONARY ARTERY ATHEROSCLEROSIS [None]
  - DRUG TOXICITY [None]
  - GASTRIC DISORDER [None]
  - HEPATIC STEATOSIS [None]
  - MALAISE [None]
  - PULMONARY OEDEMA [None]
  - RENAL DISORDER [None]
  - SCAB [None]
  - SKIN ULCER [None]
